FAERS Safety Report 5140497-5 (Version None)
Quarter: 2006Q4

REPORT INFORMATION
  Report Type: 
  Country: None (occurrence: None)
  Receive Date: 20061027
  Receipt Date: 20061027
  Transmission Date: 20070319
  Serious: Yes (Other)
  Sender: FDA-Public Use
  Company Number: None

PATIENT
  Age: 43 Year
  Sex: Female
  Weight: 65.7716 kg

DRUGS (1)
  1. ZOLOFT [Suspect]
     Indication: POST-TRAUMATIC STRESS DISORDER
     Dosage: 2 TABS DAILY
     Dates: start: 20060930, end: 20061022

REACTIONS (12)
  - BALANCE DISORDER [None]
  - DIZZINESS [None]
  - HEADACHE [None]
  - HEART RATE INCREASED [None]
  - HYPERHIDROSIS [None]
  - HYPOAESTHESIA [None]
  - MIGRAINE [None]
  - NAUSEA [None]
  - TINNITUS [None]
  - TRANCE [None]
  - VERTIGO [None]
  - VISION BLURRED [None]
